FAERS Safety Report 11806480 (Version 1)
Quarter: 2015Q4

REPORT INFORMATION
  Report Type: Spontaneous
  Country: NL (occurrence: NL)
  Receive Date: 20151207
  Receipt Date: 20151207
  Transmission Date: 20160305
  Serious: Yes (Other)
  Sender: FDA-Public Use
  Company Number: NL-TEVA-613396ISR

PATIENT
  Age: 7 Year
  Sex: Male
  Weight: 25 kg

DRUGS (3)
  1. AMOXICILLINE SUSP ORAAL 50MG/ML [Suspect]
     Active Substance: AMOXICILLIN
     Indication: PROPHYLAXIS
     Dosage: ADDITIONAL INFO: 5ML
     Route: 048
     Dates: start: 20150721, end: 20151009
  2. MACROGOL POEDER V DRANK  4G [Concomitant]
     Dosage: 16 GRAM DAILY; TWICE DAILY TWO PIECES
     Route: 048
     Dates: start: 20150620
  3. MOMETASON NEUSSPRAY 50UG/DO [Concomitant]
     Dosage: ADDITIONAL INFO: 1 INHALATION
     Route: 045
     Dates: start: 20150604

REACTIONS (3)
  - Fatigue [None]
  - Pallor [None]
  - Neutropenia [Recovered/Resolved]

NARRATIVE: CASE EVENT DATE: 20150721
